FAERS Safety Report 6161278-X (Version None)
Quarter: 2009Q2

REPORT INFORMATION
  Report Type: 
  Country: None (occurrence: None)
  Receive Date: 20090421
  Receipt Date: 20090410
  Transmission Date: 20091009
  Serious: Yes (Hospitalization)
  Sender: FDA-Public Use
  Company Number: US-BIOGENIDEC-2007BI021655

PATIENT
  Age: 51 Year
  Sex: Female

DRUGS (2)
  1. AVONEX [Suspect]
     Indication: MULTIPLE SCLEROSIS
     Route: 030
     Dates: start: 20030901, end: 20090223
  2. AVONEX [Suspect]
     Route: 030
     Dates: start: 19970101, end: 20030801

REACTIONS (3)
  - CHEST PAIN [None]
  - CORONARY ARTERY OCCLUSION [None]
  - PAIN IN EXTREMITY [None]
